FAERS Safety Report 26000818 (Version 1)
Quarter: 2025Q4

REPORT INFORMATION
  Report Type: Spontaneous
  Country: US (occurrence: US)
  Receive Date: 20251105
  Receipt Date: 20251105
  Transmission Date: 20260117
  Serious: No
  Sender: ANI
  Company Number: US-ANIPHARMA-2025-US-043334

PATIENT
  Age: 57 Year
  Sex: Female
  Weight: 89.36 kg

DRUGS (2)
  1. CORTICOTROPIN [Suspect]
     Active Substance: CORTICOTROPIN
     Indication: Systemic lupus erythematosus
     Dosage: ONE INJECTION, ONCE (DOSE UNSPECIFIED)
     Route: 058
     Dates: start: 20250808, end: 20250808
  2. MELOXICAM [Concomitant]
     Active Substance: MELOXICAM

REACTIONS (3)
  - Vitreous floaters [Not Recovered/Not Resolved]
  - Paraesthesia [Recovered/Resolved]
  - Eye disorder [Not Recovered/Not Resolved]

NARRATIVE: CASE EVENT DATE: 20250808
